FAERS Safety Report 7169305-8 (Version None)
Quarter: 2010Q4

REPORT INFORMATION
  Report Type: 
  Country: None (occurrence: None)
  Receive Date: 20101216
  Receipt Date: 20100108
  Transmission Date: 20110411
  Serious: No
  Sender: FDA-Public Use
  Company Number: US-AMGEN-KDL384491

PATIENT

DRUGS (16)
  1. ENBREL [Suspect]
     Indication: RHEUMATOID ARTHRITIS
     Dosage: 50 MG, Q2WK
     Route: 058
  2. PRAVASTATIN SODIUM [Concomitant]
     Dosage: 10 MG, UNK
  3. CENTRUM SILVER [Concomitant]
     Dosage: UNK UNK, UNK
  4. PREDNISONE [Concomitant]
     Dosage: 1 MG, UNK
  5. ZOLEDRONIC ACID [Concomitant]
     Dosage: 100 ML, UNK
  6. OXYMETAZOLINE HCL [Concomitant]
     Dosage: .05 %, UNK
  7. TOPROL-XL [Concomitant]
     Dosage: 50 MG, UNK
  8. ISOSORBIDE MONONITRADE [Concomitant]
     Dosage: 10 MG, UNK
  9. CLOPIDOGREL BISULFATE [Concomitant]
     Dosage: 75 MG, UNK
  10. POVIDONE IODINE [Concomitant]
     Dosage: UNK UNK, UNK
     Route: 047
  11. RABEPRAZOLE SODIUM [Concomitant]
     Dosage: 20 MG, UNK
  12. ASPIRIN [Concomitant]
     Dosage: 81 MG, UNK
  13. EZETIMIBE [Concomitant]
     Dosage: 10 MG, UNK
  14. CALCIUM [Concomitant]
     Dosage: 500 MG, UNK
  15. CALCIUM WITH VITAMIN D [Concomitant]
     Dosage: 500 MG, UNK
  16. RAMIPRIL [Concomitant]
     Dosage: 2.5 MG, UNK

REACTIONS (2)
  - FUNGAL INFECTION [None]
  - SINUSITIS [None]
